FAERS Safety Report 18105275 (Version 3)
Quarter: 2020Q4

REPORT INFORMATION
  Report Type: Spontaneous
  Country: US (occurrence: US)
  Receive Date: 20200803
  Receipt Date: 20201012
  Transmission Date: 20210113
  Serious: No
  Sender: FDA-Public Use
  Company Number: US-PFIZER INC-2020293259

PATIENT
  Age: 44 Year
  Sex: Female

DRUGS (1)
  1. SOMAVERT [Suspect]
     Active Substance: PEGVISOMANT
     Indication: HYPERPITUITARISM
     Dosage: 20 MG, DAILY
     Dates: start: 20200702

REACTIONS (3)
  - Drug ineffective [Unknown]
  - Fatigue [Unknown]
  - Swelling [Unknown]
